FAERS Safety Report 9507169 (Version 1)
Quarter: 2013Q1

REPORT INFORMATION
  Report Type: Spontaneous
  Country: US (occurrence: None)
  Receive Date: 20130305
  Receipt Date: 20130305
  Transmission Date: 20140127
  Serious: Yes (Hospitalization)
  Sender: FDA-Public Use
  Company Number: 163-21880-12052704

PATIENT
  Age: 70 Year
  Sex: Female
  Weight: 57.61 kg

DRUGS (9)
  1. REVLIMID [Suspect]
     Indication: NON-HODGKIN^S LYMPHOMA
     Dosage: 5 MG, 21 IN 28 D, PO
     Route: 048
     Dates: start: 20120521
  2. ACYCLOVIR (ACICLOVIR) (UNKNOWN) [Concomitant]
  3. CALCIUM (CALCIUM) (UNKNOWN) [Concomitant]
  4. CRESTOR (ROSUVASTATIN) [Concomitant]
  5. MULTIVITAMINS (MULTIVITAMINS) (UNKNOWN) [Concomitant]
  6. PREVACID (LANSOPRAZOLE) (UNKNOWN) [Concomitant]
  7. VITAMIN B6 (PYRIDOXINE HYDROCHLORIDE) (UNKNOWN) [Concomitant]
  8. LOVENOX (HEPARIN-FRACTION, SODIUM SALT) (UNKNOWN) [Concomitant]
  9. ASA 9ACETYLSALICYLIC ACID) (UNKNOWN) [Concomitant]

REACTIONS (2)
  - Platelet count decreased [None]
  - Condition aggravated [None]
